FAERS Safety Report 16864481 (Version 1)
Quarter: 2019Q3

REPORT INFORMATION
  Report Type: Spontaneous
  Country: JP (occurrence: JP)
  Receive Date: 20190928
  Receipt Date: 20190928
  Transmission Date: 20191005
  Serious: Yes (Hospitalization)
  Sender: FDA-Public Use
  Company Number: JP-ROCHE-2422334

PATIENT
  Age: 81 Year
  Sex: Female

DRUGS (2)
  1. BONVIVA [Suspect]
     Active Substance: IBANDRONATE SODIUM
     Indication: OSTEOPOROSIS
     Route: 048
  2. BONOTEO [Concomitant]
     Active Substance: MINODRONIC ACID

REACTIONS (1)
  - Disuse syndrome [Not Recovered/Not Resolved]

NARRATIVE: CASE EVENT DATE: 20190912
